FAERS Safety Report 23300604 (Version 2)
Quarter: 2023Q4

REPORT INFORMATION
  Report Type: Report from Study
  Country: GB (occurrence: GB)
  Receive Date: 20231215
  Receipt Date: 20231221
  Transmission Date: 20240110
  Serious: Yes (Hospitalization, Other)
  Sender: FDA-Public Use
  Company Number: GB-Vifor (International) Inc.-VIT-2023-09535

PATIENT
  Age: 20 Year
  Sex: Male
  Weight: 101.4 kg

DRUGS (14)
  1. CYCLOPHOSPHAMIDE [Suspect]
     Active Substance: CYCLOPHOSPHAMIDE
     Indication: Anti-neutrophil cytoplasmic antibody positive vasculitis
     Dosage: 1.1 G, EVERY 2 WEEK
     Route: 042
     Dates: start: 20231101, end: 20231114
  2. RITUXIMAB [Suspect]
     Active Substance: RITUXIMAB
     Indication: Anti-neutrophil cytoplasmic antibody positive vasculitis
     Dosage: 1 G, 1 TOTAL, SINGLE IV INFUSION
     Route: 042
     Dates: start: 20231107, end: 20231107
  3. RITUXIMAB [Suspect]
     Active Substance: RITUXIMAB
     Dosage: 1 G, 1 TOTAL, ONLY ONCE
     Route: 042
     Dates: start: 20231204, end: 20231204
  4. TAVNEOS [Suspect]
     Active Substance: AVACOPAN
     Indication: Anti-neutrophil cytoplasmic antibody positive vasculitis
     Dosage: 30 MG, TWICE DAILY (BD)
     Route: 048
     Dates: start: 20231031, end: 20231201
  5. HUMAN PLASMA [Concomitant]
     Active Substance: HUMAN PLASMA
     Indication: Anti-neutrophil cytoplasmic antibody positive vasculitis
     Dosage: UNK
     Route: 042
     Dates: start: 20231031, end: 20231106
  6. PREDNISOLONE [Concomitant]
     Active Substance: PREDNISOLONE
     Indication: Anti-neutrophil cytoplasmic antibody positive vasculitis
     Dosage: 30 MG
     Route: 048
     Dates: start: 20231103, end: 20231109
  7. PREDNISOLONE [Concomitant]
     Active Substance: PREDNISOLONE
     Dosage: 60 MG
     Route: 048
     Dates: start: 20231031, end: 20231102
  8. PREDNISOLONE [Concomitant]
     Active Substance: PREDNISOLONE
     Dosage: 40 MG, QD
     Route: 048
     Dates: start: 20231124, end: 20231204
  9. PREDNISOLONE [Concomitant]
     Active Substance: PREDNISOLONE
     Dosage: 60 MG, QD
     Route: 048
     Dates: start: 20231201
  10. DEXAMETHASONE [Concomitant]
     Active Substance: DEXAMETHASONE
     Indication: Episcleritis
     Dosage: 1 (DROP), QD
     Route: 061
     Dates: start: 20231113
  11. METHYLPREDNISOLONE [Concomitant]
     Active Substance: METHYLPREDNISOLONE
     Indication: Anti-neutrophil cytoplasmic antibody positive vasculitis
     Dosage: UNK, 1 (TOTAL), UNKNOWN DOSE GRAM ONCE ONLY
     Route: 042
     Dates: start: 20231204, end: 20231204
  12. OMEPRAZOLE [Concomitant]
     Active Substance: OMEPRAZOLE
     Indication: Prophylaxis against gastrointestinal ulcer
     Dosage: 20 MG, QD
     Route: 048
     Dates: start: 20231107
  13. COTRIMOXAZOLE [Concomitant]
     Active Substance: SULFAMETHOXAZOLE\TRIMETHOPRIM
     Indication: Infection prophylaxis
     Dosage: UNK, QD, UNKNOWN DOSE IN MG
     Route: 048
     Dates: start: 20231031
  14. THEICAL D3 [Concomitant]
     Indication: Vitamin supplementation
     Dosage: 2.5 G, QD
     Route: 048
     Dates: start: 20231125

REACTIONS (6)
  - Testicular pain [Recovered/Resolved]
  - Inflammatory marker increased [Recovered/Resolved]
  - Drug ineffective [Unknown]
  - Epididymitis [Recovered/Resolved]
  - C-reactive protein increased [Recovering/Resolving]
  - Blood creatinine increased [Not Recovered/Not Resolved]

NARRATIVE: CASE EVENT DATE: 20231124
